FAERS Safety Report 9127376 (Version 1)
Quarter: 2013Q1

REPORT INFORMATION
  Report Type: Spontaneous
  Country: US (occurrence: US)
  Receive Date: 20130228
  Receipt Date: 20130228
  Transmission Date: 20140127
  Serious: No
  Sender: FDA-Public Use
  Company Number: US-GLAXOSMITHKLINE-A0972035A

PATIENT
  Age: 26 Year
  Sex: Female

DRUGS (2)
  1. LAMOTRIGINE [Suspect]
     Indication: CONVULSION
     Route: 048
     Dates: start: 20120330
  2. KEPPRA [Suspect]

REACTIONS (3)
  - Rash [Not Recovered/Not Resolved]
  - Feeling abnormal [Unknown]
  - Pruritus [Unknown]
